FAERS Safety Report 6271699-2 (Version None)
Quarter: 2009Q3

REPORT INFORMATION
  Report Type: 
  Country: None (occurrence: None)
  Receive Date: 20090716
  Receipt Date: 20090716
  Transmission Date: 20100115
  Serious: Yes (Disabling)
  Sender: FDA-Public Use
  Company Number: None

PATIENT
  Age: 38 Year
  Sex: Female
  Weight: 63.5036 kg

DRUGS (1)
  1. MIRENA [Suspect]
     Indication: CONTRACEPTION
     Dosage: DAILY INTRA-UTERINE
     Route: 015
     Dates: start: 20070501

REACTIONS (8)
  - ARTHRALGIA [None]
  - BACK PAIN [None]
  - DRY MOUTH [None]
  - HAEMORRHAGE [None]
  - INSOMNIA [None]
  - PAIN IN EXTREMITY [None]
  - PELVIC PAIN [None]
  - SWELLING [None]
